FAERS Safety Report 4747770-0 (Version None)
Quarter: 2005Q3

REPORT INFORMATION
  Report Type: 
  Country: None (occurrence: None)
  Receive Date: 20050817
  Receipt Date: 20050817
  Transmission Date: 20060218
  Serious: Yes (Hospitalization)
  Sender: FDA-Public Use
  Company Number: None

PATIENT
  Age: 31 Year
  Sex: Female
  Weight: 87.0906 kg

DRUGS (1)
  1. HABITROL [Suspect]
     Indication: EX-SMOKER
     Dosage: 1 DAY CUTANEOUS
     Route: 003
     Dates: start: 20050713, end: 20050719

REACTIONS (1)
  - RASH GENERALISED [None]
